FAERS Safety Report 19988467 (Version 7)
Quarter: 2022Q3

REPORT INFORMATION
  Report Type: Report from Study
  Country: US (occurrence: US)
  Receive Date: 20211023
  Receipt Date: 20220708
  Transmission Date: 20221026
  Serious: Yes (Hospitalization, Other)
  Sender: FDA-Public Use
  Company Number: US-NOVARTISPH-NVSC2021US236132

PATIENT
  Sex: Male

DRUGS (2)
  1. ENTRESTO [Suspect]
     Active Substance: SACUBITRIL\VALSARTAN
     Indication: Product used for unknown indication
     Dosage: UNK UNK, BID
     Route: 048
  2. ENTRESTO [Suspect]
     Active Substance: SACUBITRIL\VALSARTAN
     Dosage: UNK
     Route: 048

REACTIONS (16)
  - Pyrexia [Unknown]
  - Chills [Unknown]
  - Lung disorder [Unknown]
  - Angina pectoris [Unknown]
  - Angina unstable [Unknown]
  - Pneumonia [Unknown]
  - Gait disturbance [Recovering/Resolving]
  - Cardiac disorder [Unknown]
  - COVID-19 [Unknown]
  - Cough [Unknown]
  - Illness [Unknown]
  - Pigmentation disorder [Unknown]
  - Depressed mood [Unknown]
  - Dizziness postural [Unknown]
  - Dizziness [Unknown]
  - Fatigue [Unknown]
